FAERS Safety Report 10232232 (Version 1)
Quarter: 2014Q2

REPORT INFORMATION
  Report Type: Spontaneous
  Country: US (occurrence: US)
  Receive Date: 20140612
  Receipt Date: 20140612
  Transmission Date: 20141212
  Serious: No
  Sender: FDA-Public Use
  Company Number: US-BIOGENIDEC-2014BI052420

PATIENT
  Age: 57 Year
  Sex: Male

DRUGS (7)
  1. TECFIDERA [Suspect]
     Indication: MULTIPLE SCLEROSIS
     Route: 048
  2. CYMBALTA [Concomitant]
     Indication: PRODUCT USED FOR UNKNOWN INDICATION
  3. GABAPENTIN [Concomitant]
     Indication: PRODUCT USED FOR UNKNOWN INDICATION
  4. ULTRAM ER [Concomitant]
     Indication: PRODUCT USED FOR UNKNOWN INDICATION
  5. ZIAC [Concomitant]
     Indication: PRODUCT USED FOR UNKNOWN INDICATION
  6. COLACE [Concomitant]
  7. MIRALAX [Concomitant]

REACTIONS (2)
  - Rhinorrhoea [Not Recovered/Not Resolved]
  - Nasal congestion [Not Recovered/Not Resolved]
